FAERS Safety Report 21228767 (Version 2)
Quarter: 2022Q3

REPORT INFORMATION
  Report Type: Other
  Country: JP (occurrence: JP)
  Receive Date: 20220818
  Receipt Date: 20220901
  Transmission Date: 20221027
  Serious: Yes (Other)
  Sender: FDA-Public Use
  Company Number: JP-CHUGAI-2022031354

PATIENT
  Age: 75 Year
  Sex: Male

DRUGS (6)
  1. BEVACIZUMAB [Suspect]
     Active Substance: BEVACIZUMAB
     Indication: Colon cancer
     Route: 041
  2. OXALIPLATIN [Concomitant]
     Active Substance: OXALIPLATIN
     Indication: Colon cancer
     Dosage: UNK
     Route: 041
  3. FLUOROURACIL [Concomitant]
     Active Substance: FLUOROURACIL
     Indication: Colon cancer
     Dosage: UNK
     Route: 040
  4. FLUOROURACIL [Concomitant]
     Active Substance: FLUOROURACIL
     Dosage: UNK
     Route: 041
  5. LEVOLEUCOVORIN CALCIUM [Concomitant]
     Active Substance: LEVOLEUCOVORIN CALCIUM
     Indication: Colon cancer
     Dosage: UNK
     Route: 041
  6. IRINOTECAN HYDROCHLORIDE [Concomitant]
     Active Substance: IRINOTECAN HYDROCHLORIDE
     Indication: Colon cancer
     Dosage: UNK
     Route: 041

REACTIONS (2)
  - Myelosuppression [Unknown]
  - Decreased appetite [Unknown]
